FAERS Safety Report 7808973-1 (Version None)
Quarter: 2011Q4

REPORT INFORMATION
  Report Type: 
  Country: None (occurrence: None)
  Receive Date: 20111012
  Receipt Date: 20110930
  Transmission Date: 20120403
  Serious: Yes (Life-Threatening, Hospitalization)
  Sender: FDA-Public Use
  Company Number: FR-BRISTOL-MYERS SQUIBB COMPANY-16148538

PATIENT
  Age: 64 Year
  Sex: Female

DRUGS (2)
  1. METFORMIN HCL [Suspect]
  2. ASPIRIN [Concomitant]

REACTIONS (4)
  - CARDIOVASCULAR DISORDER [None]
  - RENAL FAILURE ACUTE [None]
  - LACTIC ACIDOSIS [None]
  - RESPIRATORY DISORDER [None]
